FAERS Safety Report 4435269-0 (Version None)
Quarter: 2004Q3

REPORT INFORMATION
  Report Type: 
  Country: None (occurrence: None)
  Receive Date: 20040827
  Receipt Date: 20040820
  Transmission Date: 20050211
  Serious: Yes (Hospitalization)
  Sender: FDA-Public Use
  Company Number: PHBS2004CH11004

PATIENT
  Sex: Male

DRUGS (9)
  1. VOLTAREN [Suspect]
     Indication: BACK PAIN
     Dosage: 200 MG/DAY
     Dates: start: 20040715, end: 20040730
  2. ZURCAL [Suspect]
     Indication: PROPHYLAXIS
     Dosage: 20 MG/DAY
     Dates: start: 20040715, end: 20040802
  3. ANTABUSE [Suspect]
     Indication: ALCOHOLISM
     Dosage: 400 MG/DAY
     Dates: start: 20040617, end: 20040802
  4. DIAMICRON [Concomitant]
     Indication: DIABETES MELLITUS NON-INSULIN-DEPENDENT
     Dosage: 80 MG/DAY
     Dates: end: 20040802
  5. METFORMIN HCL [Concomitant]
     Indication: DIABETES MELLITUS NON-INSULIN-DEPENDENT
     Dosage: 1700 MG/DAY
     Dates: end: 20040802
  6. TRAMAL [Concomitant]
     Indication: BACK PAIN
     Dosage: 187.5 MG/DAY
     Dates: start: 20040715, end: 20040730
  7. PRAVASTATIN SODIUM [Concomitant]
     Indication: DYSLIPIDAEMIA
     Dosage: 20 MG/DAY
     Dates: end: 20040802
  8. ZESTRIL [Concomitant]
     Indication: HYPERTENSION
     Dosage: 10 MG/DAY
  9. ASPIRIN [Concomitant]
     Indication: PROPHYLAXIS
     Dosage: 100 MG/DAY
     Dates: end: 20040802

REACTIONS (19)
  - ALANINE AMINOTRANSFERASE INCREASED [None]
  - ANOREXIA [None]
  - ASPARTATE AMINOTRANSFERASE INCREASED [None]
  - ASTHENIA [None]
  - BLOOD ALBUMIN INCREASED [None]
  - BLOOD ALKALINE PHOSPHATASE INCREASED [None]
  - BLOOD BILIRUBIN INCREASED [None]
  - BLOOD THROMBOPLASTIN DECREASED [None]
  - CHOLESTASIS [None]
  - CHROMATURIA [None]
  - COAGULATION FACTOR IX LEVEL DECREASED [None]
  - CONSTIPATION [None]
  - CYTOLYTIC HEPATITIS [None]
  - GAMMA-GLUTAMYLTRANSFERASE INCREASED [None]
  - GENERAL PHYSICAL HEALTH DETERIORATION [None]
  - HEPATOCELLULAR DAMAGE [None]
  - JAUNDICE [None]
  - NAUSEA [None]
  - PROTHROMBIN LEVEL DECREASED [None]
